FAERS Safety Report 4660603-6 (Version None)
Quarter: 2005Q2

REPORT INFORMATION
  Report Type: 
  Country: None (occurrence: None)
  Receive Date: 20050425
  Receipt Date: 20040915
  Transmission Date: 20051028
  Serious: No
  Sender: FDA-Public Use
  Company Number: US086912

PATIENT
  Age: 58 Year
  Sex: Male

DRUGS (14)
  1. SENSIPAR [Suspect]
     Indication: HYPERPARATHYROIDISM SECONDARY
     Dosage: 30 MG, 1 IN 1 DAYS, PO
     Route: 048
     Dates: start: 20040701, end: 20040809
  2. DOXERCALCEROL [Concomitant]
  3. EPOGEN [Concomitant]
  4. ESOMEPRAZOLE MAGNESIUM [Concomitant]
  5. ACETYLSALICYLIC ACID [Concomitant]
  6. ATORVASTATIN CALCIUM [Concomitant]
  7. CLONAZEPAM [Concomitant]
  8. METOPROLOL SUCCINATE [Concomitant]
  9. ALLOPURINOL [Concomitant]
  10. FUROSEMIDE [Concomitant]
  11. TAMSULOSIN HCL [Concomitant]
  12. NEPHRO-VITE [Concomitant]
  13. FEXOFENADINE HYDROCHLORIDE [Concomitant]
  14. DOCUSATE [Concomitant]

REACTIONS (2)
  - BLOOD PARATHYROID HORMONE INCREASED [None]
  - RASH ERYTHEMATOUS [None]
